FAERS Safety Report 4801173-9 (Version None)
Quarter: 2005Q4

REPORT INFORMATION
  Report Type: 
  Country: None (occurrence: None)
  Receive Date: 20051011
  Receipt Date: 20051003
  Transmission Date: 20060501
  Serious: Yes (Other)
  Sender: FDA-Public Use
  Company Number: 200513390GDS

PATIENT
  Age: 17 Year
  Weight: 43.5 kg

DRUGS (1)
  1. ASPIRIN [Suspect]
     Dosage: 3600 MG, TOTAL DAILY,
     Route: 048

REACTIONS (1)
  - DEAFNESS [None]
